FAERS Safety Report 9618657 (Version 3)
Quarter: 2014Q1

REPORT INFORMATION
  Report Type: Report from Study
  Country: EC (occurrence: EC)
  Receive Date: 20131014
  Receipt Date: 20140128
  Transmission Date: 20141002
  Serious: Yes (Other)
  Sender: FDA-Public Use
  Company Number: EC-ROCHE-1254196

PATIENT
  Age: 37 Year
  Sex: Female
  Weight: 62 kg

DRUGS (7)
  1. TOCILIZUMAB [Suspect]
     Indication: RHEUMATOID ARTHRITIS
     Route: 042
     Dates: start: 20130517, end: 20130709
  2. TOCILIZUMAB [Suspect]
     Route: 042
     Dates: start: 20130417, end: 20130417
  3. PREDNISONE [Concomitant]
     Indication: ARTHRITIS
     Route: 048
     Dates: start: 201002, end: 20130709
  4. PREDNISONE [Concomitant]
     Route: 048
     Dates: start: 20130417
  5. IBUPROFEN [Concomitant]
  6. CALCIO D [Concomitant]
  7. FLOTAC [Concomitant]
     Route: 065
     Dates: start: 20130417, end: 20130422

REACTIONS (2)
  - Abortion [Unknown]
  - Exposure during pregnancy [Unknown]
